FAERS Safety Report 25086824 (Version 1)
Quarter: 2025Q1

REPORT INFORMATION
  Report Type: Report from Study
  Country: DE (occurrence: DE)
  Receive Date: 20250318
  Receipt Date: 20250318
  Transmission Date: 20250409
  Serious: Yes (Other)
  Sender: ABBVIE
  Company Number: DE-ABBVIE-6174659

PATIENT
  Sex: Female

DRUGS (1)
  1. RINVOQ [Suspect]
     Active Substance: UPADACITINIB
     Indication: Exposure via body fluid
     Route: 050

REACTIONS (3)
  - Maternal exposure via partner during pregnancy [Unknown]
  - Paternal exposure during pregnancy [Unknown]
  - Live birth [Unknown]
